FAERS Safety Report 7001837-5 (Version None)
Quarter: 2010Q3

REPORT INFORMATION
  Report Type: 
  Country: None (occurrence: None)
  Receive Date: 20100920
  Receipt Date: 20070529
  Transmission Date: 20110219
  Serious: Yes (Other)
  Sender: FDA-Public Use
  Company Number: US-ASTRAZENECA-2006UW23915

PATIENT
  Sex: Female
  Weight: 55.3 kg

DRUGS (9)
  1. SEROQUEL [Suspect]
     Indication: SCHIZOPHRENIA
     Dosage: 25 MG, 1/2 QD
     Route: 048
     Dates: start: 20031114
  2. SEROQUEL [Suspect]
     Indication: BIPOLAR DISORDER
     Dosage: 25 MG, 1/2 QD
     Route: 048
     Dates: start: 20031114
  3. SEROQUEL [Suspect]
     Indication: DEPRESSION
     Dosage: 25 MG, 1/2 QD
     Route: 048
     Dates: start: 20031114
  4. SEROQUEL [Suspect]
     Route: 048
     Dates: end: 20030101
  5. SEROQUEL [Suspect]
     Route: 048
     Dates: end: 20030101
  6. SEROQUEL [Suspect]
     Route: 048
     Dates: end: 20030101
  7. ABILIFY [Concomitant]
  8. RISPERDAL [Concomitant]
  9. ZYPREXA [Concomitant]
     Indication: SLEEP DISORDER
     Dates: start: 20030925, end: 20031114

REACTIONS (4)
  - DIABETIC COMA [None]
  - DIABETIC KETOACIDOSIS [None]
  - PANCREATITIS [None]
  - TYPE 2 DIABETES MELLITUS [None]
